FAERS Safety Report 5471931-9 (Version None)
Quarter: 2007Q3

REPORT INFORMATION
  Report Type: 
  Country: None (occurrence: None)
  Receive Date: 20070928
  Receipt Date: 20070917
  Transmission Date: 20080115
  Serious: Yes (Disabling)
  Sender: FDA-Public Use
  Company Number: GB-PFIZER INC-2007072546

PATIENT
  Sex: Female
  Weight: 57.2 kg

DRUGS (2)
  1. AROMASIN [Suspect]
     Indication: BREAST CANCER
     Route: 048
     Dates: start: 20070401, end: 20070801
  2. ASPIRIN [Concomitant]
     Dosage: DAILY DOSE:75MG
     Route: 048

REACTIONS (6)
  - ALOPECIA [None]
  - ARTHRALGIA [None]
  - DEPRESSION [None]
  - FATIGUE [None]
  - OSTEOARTHRITIS [None]
  - TENDON DISORDER [None]
